FAERS Safety Report 4750835-0 (Version None)
Quarter: 2005Q3

REPORT INFORMATION
  Report Type: 
  Country: None (occurrence: None)
  Receive Date: 20050822
  Receipt Date: 20050804
  Transmission Date: 20060218
  Serious: Yes (Congenital Anomaly, Other)
  Sender: FDA-Public Use
  Company Number: 2005-BP-13430RO

PATIENT
  Age: 38 Week
  Sex: Female
  Weight: 2.57 kg

DRUGS (2)
  1. METHOTREXATE [Suspect]
     Indication: ABORTION INDUCED
     Dosage: IN-UTERO EXPOSURE
  2. MISOPROSTOL [Suspect]
     Indication: ABORTION INDUCED
     Dosage: IN-UTERO EXPOSURE

REACTIONS (16)
  - BREECH PRESENTATION [None]
  - CLINODACTYLY [None]
  - CONGENITAL EYE DISORDER [None]
  - CONGENITAL HAIR DISORDER [None]
  - CONGENITAL MUSCULOSKELETAL ANOMALY [None]
  - DEVELOPMENTAL DELAY [None]
  - DRUG EXPOSURE DURING PREGNANCY [None]
  - DUBOWITZ SYNDROME [None]
  - FACIAL DYSMORPHISM [None]
  - GROWTH RETARDATION [None]
  - INDUCED ABORTION FAILED [None]
  - JOINT HYPEREXTENSION [None]
  - MICROCEPHALY [None]
  - MOTOR DYSFUNCTION [None]
  - NOSE DEFORMITY [None]
  - TWIN PREGNANCY [None]
